FAERS Safety Report 24709733 (Version 1)
Quarter: 2024Q4

REPORT INFORMATION
  Report Type: Spontaneous
  Country: RO (occurrence: RO)
  Receive Date: 20241209
  Receipt Date: 20241209
  Transmission Date: 20250115
  Serious: Yes (Other)
  Sender: CELLTRION
  Company Number: RO-ROCHE-3575733

PATIENT

DRUGS (11)
  1. BEVACIZUMAB [Suspect]
     Active Substance: BEVACIZUMAB
     Indication: Hepatocellular carcinoma
     Dosage: 15 MILLIGRAM/KILOGRAM, 3/WEEK
     Route: 065
  2. ATEZOLIZUMAB [Suspect]
     Active Substance: ATEZOLIZUMAB
     Indication: Hepatocellular carcinoma
     Dosage: 1200 MILLIGRAM, 3/WEEK
     Route: 065
  3. TREMELIMUMAB [Concomitant]
     Active Substance: TREMELIMUMAB
  4. DURVALUMAB [Concomitant]
     Active Substance: DURVALUMAB
     Dosage: UNK
  5. DURVALUMAB [Concomitant]
     Active Substance: DURVALUMAB
     Dosage: UNK
  6. SORAFENIB [Concomitant]
     Active Substance: SORAFENIB
  7. LENVATINIB [Concomitant]
     Active Substance: LENVATINIB
  8. URSODIOL [Concomitant]
     Active Substance: URSODIOL
     Dosage: 250 MG, 0.33/DAY
  9. TRAMADOL [Concomitant]
     Active Substance: TRAMADOL
     Dosage: 250 MILLIGRAM, EVERY 12  HOURS
  10. DEXAMETHASONE [Concomitant]
     Active Substance: DEXAMETHASONE
     Dosage: 12 MILLIGRAM, DAILY
  11. METHYLPREDNISOLONE [Concomitant]
     Active Substance: METHYLPREDNISOLONE

REACTIONS (2)
  - Hepatic function abnormal [Unknown]
  - Intentional product use issue [Unknown]

NARRATIVE: CASE EVENT DATE: 20240201
